FAERS Safety Report 6523983-2 (Version None)
Quarter: 2009Q4

REPORT INFORMATION
  Report Type: 
  Country: None (occurrence: None)
  Receive Date: 20091231
  Receipt Date: 20091223
  Transmission Date: 20100525
  Serious: Yes (Other)
  Sender: FDA-Public Use
  Company Number: US-ASTRAZENECA-2009SE33320

PATIENT
  Age: 65 Year
  Sex: Female
  Weight: 29.9 kg

DRUGS (4)
  1. SEROQUEL [Suspect]
     Indication: ANXIETY
     Route: 048
  2. ZYPREXA [Concomitant]
     Route: 048
  3. CLONAZEPAM [Concomitant]
     Route: 048
  4. SERTRALINE HCL [Concomitant]
     Dosage: 300 MG, HS
     Route: 048

REACTIONS (7)
  - DYSSTASIA [None]
  - HEAD LAG ABNORMAL [None]
  - OEDEMA PERIPHERAL [None]
  - OVERDOSE [None]
  - PARALYSIS [None]
  - SOMNOLENCE [None]
  - WEIGHT INCREASED [None]
